FAERS Safety Report 5874542-6 (Version None)
Quarter: 2008Q3

REPORT INFORMATION
  Report Type: 
  Country: None (occurrence: None)
  Receive Date: 20080909
  Receipt Date: 20080901
  Transmission Date: 20090109
  Serious: Yes (Other)
  Sender: FDA-Public Use
  Company Number: PHHY2008AT10179

PATIENT
  Sex: Female

DRUGS (4)
  1. EXFORGE [Suspect]
     Indication: HYPERTENSION
     Dosage: 10/160 MG DAILY
     Route: 048
     Dates: start: 20080325, end: 20080430
  2. ITERIUM [Concomitant]
     Dosage: 1 MG/DAY
  3. LEGALON [Concomitant]
     Indication: HEPATIC STEATOSIS
     Dosage: 140 MG, BID
     Dates: start: 20030101
  4. DIOVAN HCT [Concomitant]
     Indication: HYPERTENSION
     Dosage: 1 DF, QD
     Route: 048
     Dates: start: 20080605

REACTIONS (3)
  - DISEASE PROGRESSION [None]
  - FACE OEDEMA [None]
  - OEDEMA PERIPHERAL [None]
